FAERS Safety Report 23440002 (Version 2)
Quarter: 2024Q1

REPORT INFORMATION
  Report Type: Spontaneous
  Country: US (occurrence: US)
  Receive Date: 20240124
  Receipt Date: 20240207
  Transmission Date: 20240410
  Serious: Yes (Other)
  Sender: FDA-Public Use
  Company Number: US-ABBVIE-5602583

PATIENT
  Sex: Female

DRUGS (2)
  1. RESTASIS [Suspect]
     Active Substance: CYCLOSPORINE
     Indication: Dry eye
     Dosage: 1 DROP?FORM STRENGTH: 0.5MG/ML
     Route: 047
     Dates: start: 2014
  2. RESTASIS [Suspect]
     Active Substance: CYCLOSPORINE
     Route: 047

REACTIONS (14)
  - Lymphoma [Unknown]
  - Stomatitis [Unknown]
  - Herpes simplex [Not Recovered/Not Resolved]
  - Feeding disorder [Unknown]
  - Eye pain [Unknown]
  - Drug ineffective [Unknown]
  - Foreign body sensation in eyes [Unknown]
  - Cheilitis [Not Recovered/Not Resolved]
  - Blood blister [Not Recovered/Not Resolved]
  - Lip injury [Not Recovered/Not Resolved]
  - Corneal transplant [Unknown]
  - Lip swelling [Not Recovered/Not Resolved]
  - Scar [Not Recovered/Not Resolved]
  - Fluid intake reduced [Unknown]

NARRATIVE: CASE EVENT DATE: 20230101
